FAERS Safety Report 7316146-4 (Version None)
Quarter: 2011Q1

REPORT INFORMATION
  Report Type: 
  Country: None (occurrence: None)
  Receive Date: 20110225
  Receipt Date: 20110218
  Transmission Date: 20110831
  Serious: Yes (Hospitalization, Other)
  Sender: FDA-Public Use
  Company Number: JP-B.I. PHARMACEUTICALS,INC./RIDGEFIELD-2011-BP-01455NB

PATIENT
  Sex: Female
  Weight: 45 kg

DRUGS (8)
  1. ADALAT CC [Concomitant]
     Indication: HYPERTENSION
     Dosage: 40 MG
     Route: 048
  2. AMARYL [Concomitant]
     Indication: DIABETES MELLITUS
     Dosage: 1 MG
     Route: 048
  3. OMEPRAL [Concomitant]
     Indication: GASTRIC ULCER
     Dosage: 20 MG
     Route: 048
  4. KINEDAK [Concomitant]
     Indication: DIABETIC NEUROPATHY
     Dosage: 150 MG
     Route: 048
  5. MAGMITT [Concomitant]
     Indication: CONSTIPATION
     Dosage: 990 MG
     Route: 048
     Dates: start: 20110101
  6. FLUITRAN [Concomitant]
     Indication: HYPERTENSION
     Dosage: 1 MG
     Route: 048
     Dates: start: 20101226
  7. MICARDIS [Suspect]
     Indication: HYPERTENSION
     Dosage: 20 MG
     Route: 048
     Dates: end: 20110114
  8. BENET [Concomitant]
     Indication: OSTEOPOROSIS
     Dosage: 17.5 MG
     Route: 048

REACTIONS (6)
  - VENTRICULAR EXTRASYSTOLES [None]
  - LARYNGEAL NEOPLASM [None]
  - HYPERKALAEMIA [None]
  - VENTRICULAR TACHYCARDIA [None]
  - BLOOD CREATININE INCREASED [None]
  - HYPONATRAEMIA [None]
